FAERS Safety Report 4355249-3 (Version None)
Quarter: 2004Q2

REPORT INFORMATION
  Report Type: 
  Country: None (occurrence: None)
  Receive Date: 20040504
  Receipt Date: 20040421
  Transmission Date: 20050107
  Serious: Yes (Hospitalization)
  Sender: FDA-Public Use
  Company Number: 236480

PATIENT
  Age: 36 Year
  Sex: Male
  Weight: 70 kg

DRUGS (3)
  1. INSULATARD (INSULIN HUMAN) SUSPENSION FOR INJECTION, 100IU/ML [Suspect]
  2. NOVORAPID (INSULIN ASPART) SOLUTION FOR INJECTION [Concomitant]
  3. INSULIN GLARGINE [Concomitant]

REACTIONS (1)
  - FEMUR FRACTURE [None]
